FAERS Safety Report 9433325 (Version 1)
Quarter: 2013Q3

REPORT INFORMATION
  Report Type: Spontaneous
  Country: CA (occurrence: CA)
  Receive Date: 20130731
  Receipt Date: 20130731
  Transmission Date: 20140515
  Serious: Yes (Death)
  Sender: FDA-Public Use
  Company Number: CA-EISAI INC-A001-002-002433

PATIENT
  Age: 76 Year
  Sex: Female

DRUGS (2)
  1. ARICEPT [Suspect]
     Indication: DEMENTIA ALZHEIMER^S TYPE
     Route: 048
     Dates: start: 19971003
  2. NAPROXEN [Concomitant]
     Dosage: 500 MG DAILY

REACTIONS (2)
  - Cerebrovascular disorder [Fatal]
  - Syncope [Fatal]
